FAERS Safety Report 5191725-1 (Version None)
Quarter: 2006Q4

REPORT INFORMATION
  Report Type: 
  Country: None (occurrence: None)
  Receive Date: 20061219
  Receipt Date: 20061207
  Transmission Date: 20070319
  Serious: Yes (Hospitalization, Disabling)
  Sender: FDA-Public Use
  Company Number: 2006121118

PATIENT
  Age: 58 Year
  Sex: Male
  Weight: 92.5338 kg

DRUGS (3)
  1. CELEBREX [Suspect]
     Indication: OSTEOARTHRITIS
     Dosage: (200 MG, PRN: 2-3 TIMES/WEEK), ORAL
     Route: 048
  2. EFFEXOR XR [Concomitant]
  3. ATIVAN [Concomitant]

REACTIONS (3)
  - CORONARY ARTERY THROMBOSIS [None]
  - MYOCARDIAL INFARCTION [None]
  - STRESS AT WORK [None]
